FAERS Safety Report 4333753-1 (Version None)
Quarter: 2004Q2

REPORT INFORMATION
  Report Type: 
  Country: None (occurrence: None)
  Receive Date: 20040406
  Receipt Date: 20040406
  Transmission Date: 20050107
  Serious: Yes (Other)
  Sender: FDA-Public Use
  Company Number: None

PATIENT
  Sex: Male
  Weight: 29.4838 kg

DRUGS (1)
  1. ZANTAC [Suspect]
     Indication: GASTRITIS
     Dosage: 1 TSP 2/DAY ORAL
     Route: 048
     Dates: start: 20031101, end: 20040226

REACTIONS (7)
  - ABNORMAL BEHAVIOUR [None]
  - AGGRESSION [None]
  - EMOTIONAL DISTRESS [None]
  - HOMICIDAL IDEATION [None]
  - NEGATIVISM [None]
  - SCHOOL REFUSAL [None]
  - SCREAMING [None]
